FAERS Safety Report 6089241-8 (Version None)
Quarter: 2009Q1

REPORT INFORMATION
  Report Type: 
  Country: None (occurrence: None)
  Receive Date: 20090224
  Receipt Date: 20090212
  Transmission Date: 20090719
  Serious: Yes (Other)
  Sender: FDA-Public Use
  Company Number: JP-PFIZER INC-2009150491

PATIENT

DRUGS (4)
  1. GABAPEN [Suspect]
     Indication: BACK PAIN
     Dosage: UNK
     Route: 048
     Dates: start: 20080328
  2. GABAPEN [Suspect]
     Indication: HYPOAESTHESIA
  3. FENTANYL [Concomitant]
     Indication: BACK PAIN
     Dosage: 15 MG/ EVERY THIRD DAY
     Route: 062
  4. FENTANYL [Concomitant]
     Indication: HYPOAESTHESIA

REACTIONS (4)
  - DELIRIUM [None]
  - FALL [None]
  - RENAL DISORDER [None]
  - SOMNOLENCE [None]
